FAERS Safety Report 10099135 (Version 1)
Quarter: 2014Q2

REPORT INFORMATION
  Report Type: Spontaneous
  Country: US (occurrence: None)
  Receive Date: 20140422
  Receipt Date: 20140422
  Transmission Date: 20141212
  Serious: Yes (Other)
  Sender: FDA-Public Use
  Company Number: None

PATIENT
  Age: 38 Year
  Sex: Female
  Weight: 117.94 kg

DRUGS (1)
  1. CIPRO [Suspect]
     Indication: LOCALISED INFECTION
     Dosage: 1
     Route: 048
     Dates: start: 20140325, end: 20140401

REACTIONS (5)
  - Erythema [None]
  - Pain in extremity [None]
  - Movement disorder [None]
  - Toxicity to various agents [None]
  - Asthenia [None]
